FAERS Safety Report 16402388 (Version 3)
Quarter: 2019Q2

REPORT INFORMATION
  Report Type: Spontaneous
  Country: JP (occurrence: JP)
  Receive Date: 20190607
  Receipt Date: 20190620
  Transmission Date: 20190711
  Serious: Yes (Hospitalization)
  Sender: FDA-Public Use
  Company Number: JP-CELLTRION INC.-2018JP019413

PATIENT

DRUGS (14)
  1. INFLIXIMAB BS FOR I.V. INFUSION100 MG [NK] [Suspect]
     Active Substance: INFLIXIMAB
     Dosage: 250 MG/BODY/DAY
     Route: 041
     Dates: start: 20171107
  2. INFLIXIMAB BS FOR I.V. INFUSION100 MG [NK] [Suspect]
     Active Substance: INFLIXIMAB
     Dosage: 250 MG/BODY/DAY
     Route: 041
     Dates: start: 20180129
  3. NEORAL [Concomitant]
     Active Substance: CYCLOSPORINE
     Indication: PUSTULAR PSORIASIS
     Dosage: 200 MG, DAILY
     Dates: start: 20171016, end: 20171114
  4. INFLIXIMAB BS FOR I.V. INFUSION100 MG [NK] [Suspect]
     Active Substance: INFLIXIMAB
     Dosage: 250 MG/BODY/DAY
     Route: 041
     Dates: start: 20180226, end: 20180226
  5. INFLIXIMAB BS FOR I.V. INFUSION100 MG [NK] [Suspect]
     Active Substance: INFLIXIMAB
     Dosage: 400 MG/BODY/DAY
     Route: 041
     Dates: start: 20180326
  6. PREDONINE [Concomitant]
     Active Substance: PREDNISOLONE
     Indication: PUSTULAR PSORIASIS
     Dosage: 12.5 MG, DAILY
     Route: 065
     Dates: start: 20170928, end: 20171107
  7. PARIET [Concomitant]
     Active Substance: RABEPRAZOLE SODIUM
     Indication: PROPHYLAXIS AGAINST GASTROINTESTINAL ULCER
     Dosage: 10 MG, DAILY
     Route: 065
     Dates: start: 20170928, end: 20171107
  8. ANTEBATE [Concomitant]
     Active Substance: BETAMETHASONE DIPROPIONATE
     Dosage: UNK
     Dates: start: 20171006
  9. INFLIXIMAB BS FOR I.V. INFUSION100 MG [NK] [Suspect]
     Active Substance: INFLIXIMAB
     Dosage: 250 MG/BODY/DAY
     Route: 041
     Dates: start: 20171204
  10. PROPETO [Concomitant]
     Active Substance: PETROLATUM
     Dosage: UNK
     Dates: start: 20171006
  11. INFLIXIMAB BS FOR I.V. INFUSION100 MG [NK] [Suspect]
     Active Substance: INFLIXIMAB
     Dosage: 400 MG/BODY/DAY
     Route: 041
     Dates: start: 20181126, end: 20181126
  12. INFLIXIMAB BS FOR I.V. INFUSION100 MG [NK] [Suspect]
     Active Substance: INFLIXIMAB
     Indication: PUSTULAR PSORIASIS
     Dosage: 250 MG/BODY/DAY
     Route: 041
     Dates: start: 20171019
  13. INFLIXIMAB BS FOR I.V. INFUSION100 MG [NK] [Suspect]
     Active Substance: INFLIXIMAB
     Dosage: 400 MG/BODY/DAY
     Route: 041
     Dates: start: 20181002
  14. INFLIXIMAB BS FOR I.V. INFUSION100 MG [NK] [Suspect]
     Active Substance: INFLIXIMAB
     Dosage: 400 MG/BODY/DAY
     Route: 041
     Dates: start: 20180618

REACTIONS (4)
  - Inappropriate schedule of product administration [Unknown]
  - Drug ineffective [Unknown]
  - Maternal exposure during pregnancy [Unknown]
  - Myalgia [Recovered/Resolved]

NARRATIVE: CASE EVENT DATE: 20180227
